FAERS Safety Report 7476824-3 (Version None)
Quarter: 2011Q2

REPORT INFORMATION
  Report Type: 
  Country: None (occurrence: None)
  Receive Date: 20110512
  Receipt Date: 20110315
  Transmission Date: 20111010
  Serious: Yes (Death)
  Sender: FDA-Public Use
  Company Number: PHHY2011JP31683

PATIENT
  Age: 35 Year
  Sex: Male
  Weight: 50 kg

DRUGS (2)
  1. PHENOBARBITAL TAB [Suspect]
     Dosage: 0.6 G
  2. CARBAMAZEPINE [Suspect]
     Dosage: 8.4 G

REACTIONS (6)
  - ANTICONVULSANT DRUG LEVEL INCREASED [None]
  - TOXICITY TO VARIOUS AGENTS [None]
  - BRAIN OEDEMA [None]
  - PULMONARY CONGESTION [None]
  - OVERDOSE [None]
  - PULMONARY OEDEMA [None]
